FAERS Safety Report 10851015 (Version 1)
Quarter: 2015Q1

REPORT INFORMATION
  Report Type: Spontaneous
  Country: US (occurrence: US)
  Receive Date: 20150222
  Receipt Date: 20150222
  Transmission Date: 20150721
  Serious: No
  Sender: FDA-Public Use
  Company Number: US-ALLERGAN-1402534US

PATIENT
  Age: 79 Year
  Sex: Female

DRUGS (2)
  1. BOTOX [Suspect]
     Active Substance: ONABOTULINUMTOXINA
     Indication: ENTROPION
     Dosage: UNK
  2. E.E.S. [Concomitant]
     Active Substance: ERYTHROMYCIN ETHYLSUCCINATE
     Indication: EYE INFECTION
     Dosage: UNK
     Route: 047
     Dates: start: 201401

REACTIONS (3)
  - Off label use [Unknown]
  - Eye disorder [Unknown]
  - Lid sulcus deepened [Unknown]
